FAERS Safety Report 8128826-1 (Version None)
Quarter: 2012Q1

REPORT INFORMATION
  Report Type: 
  Country: None (occurrence: None)
  Receive Date: 20120210
  Receipt Date: 20110524
  Transmission Date: 20120608
  Serious: No
  Sender: FDA-Public Use
  Company Number: US-BRISTOL-MYERS SQUIBB COMPANY-15621600

PATIENT
  Age: 15 Year
  Sex: Male

DRUGS (8)
  1. PREVACID [Concomitant]
  2. TYLENOL W/ CODEINE [Concomitant]
  3. STEROIDS [Concomitant]
  4. FOLIC ACID [Concomitant]
  5. ORENCIA [Suspect]
     Indication: JUVENILE ARTHRITIS
     Dosage: STARTED 1 AND HALF YEARS AGO
     Route: 042
     Dates: start: 20090801
  6. ZANTAC [Concomitant]
  7. METHOTREXATE [Concomitant]
  8. PREDNISONE TAB [Concomitant]

REACTIONS (2)
  - SACROILIITIS [None]
  - PAIN [None]
